FAERS Safety Report 10211180 (Version 1)
Quarter: 2014Q2

REPORT INFORMATION
  Report Type: Report from Study
  Country: US (occurrence: US)
  Receive Date: 20140602
  Receipt Date: 20140602
  Transmission Date: 20141212
  Serious: No
  Sender: FDA-Public Use
  Company Number: US-ABBVIE-13P-163-1163394-00

PATIENT
  Age: 65 Year
  Sex: Male
  Weight: 83.99 kg

DRUGS (1)
  1. MARINOL [Suspect]
     Indication: APPETITE DISORDER
     Dates: start: 20131004

REACTIONS (2)
  - Dyspepsia [Recovered/Resolved]
  - Oropharyngeal pain [Recovered/Resolved]
